FAERS Safety Report 10655993 (Version 2)
Quarter: 2015Q2

REPORT INFORMATION
  Report Type: Spontaneous
  Country: PE (occurrence: PE)
  Receive Date: 20141216
  Receipt Date: 20150518
  Transmission Date: 20150821
  Serious: Yes (Hospitalization, Other)
  Sender: FDA-Public Use
  Company Number: PE-PFIZER INC-2014345069

PATIENT
  Age: 79 Year
  Sex: Male

DRUGS (3)
  1. LIPITOR [Concomitant]
     Active Substance: ATORVASTATIN CALCIUM
     Dosage: UNK
  2. CARDURA XL [Suspect]
     Active Substance: DOXAZOSIN MESYLATE
     Dosage: UNK
  3. NEURONTIN [Concomitant]
     Active Substance: GABAPENTIN
     Dosage: UNK

REACTIONS (1)
  - Cerebrovascular accident [Recovering/Resolving]

NARRATIVE: CASE EVENT DATE: 201412
